FAERS Safety Report 4815645-4 (Version None)
Quarter: 2005Q4

REPORT INFORMATION
  Report Type: 
  Country: None (occurrence: None)
  Receive Date: 20051026
  Receipt Date: 20051012
  Transmission Date: 20060501
  Serious: Yes (Life-Threatening, Hospitalization, Disabling)
  Sender: FDA-Public Use
  Company Number: 2002138757US

PATIENT
  Age: 29 Year
  Sex: Male

DRUGS (5)
  1. CELEBREX [Suspect]
     Indication: BACK PAIN
     Dosage: 200 MG (1 IN 1 D), ORAL
     Route: 048
  2. PANTOPRAZOLE SODIUM [Suspect]
     Indication: ILL-DEFINED DISORDER
     Dosage: 40 MG (1 IN 1 D), ORAL
     Route: 048
     Dates: start: 20011218
  3. EFFEXOR [Suspect]
     Indication: DEPRESSION
     Dosage: 37.5 MG (1 IN 1 D), ORAL
     Route: 048
     Dates: start: 20011218, end: 20011221
  4. METHADONE HCL [Suspect]
     Indication: BACK PAIN
     Dosage: 10 MG (1 IN 1 D)
     Dates: start: 20011218
  5. REMERON [Suspect]
     Indication: ILL-DEFINED DISORDER
     Dosage: 15 MG (1 IN 1 D)
     Dates: start: 20011218

REACTIONS (8)
  - BRAIN DAMAGE [None]
  - CYANOSIS [None]
  - DRUG ABUSER [None]
  - DRUG WITHDRAWAL SYNDROME [None]
  - EPILEPSY [None]
  - FOAMING AT MOUTH [None]
  - IMPAIRED WORK ABILITY [None]
  - RESPIRATORY FAILURE [None]
